FAERS Safety Report 11335713 (Version 1)
Quarter: 2015Q3

REPORT INFORMATION
  Report Type: Spontaneous
  Country: FR (occurrence: FR)
  Receive Date: 20150804
  Receipt Date: 20150804
  Transmission Date: 20151125
  Serious: Yes (Hospitalization, Other)
  Sender: FDA-Public Use
  Company Number: FR-009507513-1508FRA000214

PATIENT
  Age: 26 Year
  Sex: Female
  Weight: 64 kg

DRUGS (2)
  1. NEXPLANON [Suspect]
     Active Substance: ETONOGESTREL
     Indication: CONTRACEPTION
     Dosage: UNK
     Route: 059
     Dates: start: 20120607, end: 2015
  2. NEXPLANON [Suspect]
     Active Substance: ETONOGESTREL
     Dosage: UNK
     Route: 059
     Dates: start: 20150521

REACTIONS (3)
  - Intracranial meningioma malignant [Unknown]
  - Meningioma surgery [Unknown]
  - Mammoplasty [Unknown]

NARRATIVE: CASE EVENT DATE: 2015
